FAERS Safety Report 9917777 (Version 2)
Quarter: 2014Q1

REPORT INFORMATION
  Report Type: Spontaneous
  Country: US (occurrence: US)
  Receive Date: 20140221
  Receipt Date: 20140318
  Transmission Date: 20141002
  Serious: No
  Sender: FDA-Public Use
  Company Number: US-PFIZER INC-2014048070

PATIENT
  Age: 68 Year
  Sex: Male

DRUGS (7)
  1. INLYTA [Suspect]
     Indication: RENAL CELL CARCINOMA
     Dosage: 5 MG, 2X/DAY
     Route: 048
     Dates: start: 20140131
  2. MS CONTIN [Concomitant]
     Indication: PAIN
     Dosage: 15 MG, 2X/DAY
  3. OXYCODONE [Concomitant]
     Indication: PAIN
     Dosage: 5 MG, AS NEEDED
  4. AMLODIPINE [Concomitant]
     Dosage: UNK
  5. BENAZEPRIL [Concomitant]
     Dosage: UNK
  6. SIMVASTATIN [Concomitant]
     Dosage: UNK
  7. GLIPIZIDE [Concomitant]
     Dosage: UNK

REACTIONS (2)
  - Pain in extremity [Recovered/Resolved]
  - Ear pain [Recovered/Resolved]
